FAERS Safety Report 6691851-1 (Version None)
Quarter: 2010Q2

REPORT INFORMATION
  Report Type: 
  Country: None (occurrence: None)
  Receive Date: 20100422
  Receipt Date: 20100413
  Transmission Date: 20101027
  Serious: Yes (Hospitalization)
  Sender: FDA-Public Use
  Company Number: PHHY2010MX05732

PATIENT
  Sex: Female

DRUGS (1)
  1. ACLASTA [Suspect]
     Indication: OSTEOPOROSIS
     Dosage: 5 MG/100ML PER YEAR
     Route: 042
     Dates: start: 20090401

REACTIONS (6)
  - APPENDICECTOMY [None]
  - APPENDICITIS [None]
  - APPENDICITIS PERFORATED [None]
  - GASTROINTESTINAL INJURY [None]
  - PERITONITIS [None]
  - SURGERY [None]
